FAERS Safety Report 9112060 (Version 1)
Quarter: 2013Q1

REPORT INFORMATION
  Report Type: Spontaneous
  Country: US (occurrence: US)
  Receive Date: 20130219
  Receipt Date: 20130219
  Transmission Date: 20140127
  Serious: No
  Sender: FDA-Public Use
  Company Number: US-BRISTOL-MYERS SQUIBB COMPANY-16692014

PATIENT
  Age: 66 Year
  Sex: Female
  Weight: 71 kg

DRUGS (9)
  1. ORENCIA FOR INJ [Suspect]
     Indication: RHEUMATOID ARTHRITIS
     Dosage: 2ND INF ON 29JUN12?RECENT DOSE 10AUG12?ORENCIA SUBQ:4SEP2012
     Route: 042
     Dates: start: 20120605
  2. PREDNISONE [Concomitant]
  3. CARVEDILOL [Concomitant]
  4. FOSINOPRIL SODIUM [Concomitant]
  5. ZOCOR [Concomitant]
  6. MULTIVITAMIN [Concomitant]
  7. VITAMIN B COMPLEX [Concomitant]
  8. VITAMIN D3 [Concomitant]
  9. VICODIN [Concomitant]

REACTIONS (5)
  - Pyrexia [Unknown]
  - Musculoskeletal stiffness [Unknown]
  - Swelling [Recovered/Resolved]
  - Drug ineffective [Unknown]
  - Hypertension [Not Recovered/Not Resolved]
